FAERS Safety Report 5744504-8 (Version None)
Quarter: 2008Q2

REPORT INFORMATION
  Report Type: 
  Country: None (occurrence: None)
  Receive Date: 20080516
  Receipt Date: 20080506
  Transmission Date: 20081010
  Serious: Yes (Hospitalization)
  Sender: FDA-Public Use
  Company Number: 2007US002487

PATIENT
  Age: 17 Year
  Sex: Male
  Weight: 71.5 kg

DRUGS (8)
  1. PROGRAF [Suspect]
     Indication: RENAL TRANSPLANT
     Dates: start: 20040928
  2. DACLIZUMAB (DACLIZUMAB) [Suspect]
     Indication: RENAL TRANSPLANT
     Dosage: 70 MG, OTHER, IV NOS
     Route: 042
     Dates: start: 20050329, end: 20050329
  3. NORVASC [Concomitant]
  4. NU-IRON (POLYSACCHARIDE-IRON COMPLEX) [Concomitant]
  5. SEPTRA [Concomitant]
  6. SINGULAIR (MONELUKAST) [Concomitant]
  7. PROTONIX [Concomitant]
  8. TIMENTIN (TICARVILLIN DISODIUM, CLAVULANIC ACID) [Concomitant]

REACTIONS (4)
  - HAEMATOCRIT DECREASED [None]
  - HAEMOGLOBIN DECREASED [None]
  - PNEUMONIA ASPIRATION [None]
  - RESPIRATORY DISTRESS [None]
